FAERS Safety Report 5020028-0 (Version None)
Quarter: 2006Q2

REPORT INFORMATION
  Report Type: 
  Country: None (occurrence: None)
  Receive Date: 20060601
  Receipt Date: 20060516
  Transmission Date: 20061013
  Serious: Yes (Hospitalization)
  Sender: FDA-Public Use
  Company Number: DSA_28204_2006

PATIENT
  Sex: Female

DRUGS (1)
  1. TAVOR    /00273201/ [Suspect]
     Dosage: 30 TAB ONCE PO
     Route: 048
     Dates: start: 20060515, end: 20060515

REACTIONS (4)
  - DEPRESSED LEVEL OF CONSCIOUSNESS [None]
  - OVERDOSE [None]
  - SUICIDE ATTEMPT [None]
  - VOMITING [None]
